FAERS Safety Report 5497076-X (Version None)
Quarter: 2007Q4

REPORT INFORMATION
  Report Type: 
  Country: None (occurrence: None)
  Receive Date: 20071025
  Receipt Date: 20071022
  Transmission Date: 20080405
  Serious: Yes (Hospitalization)
  Sender: FDA-Public Use
  Company Number: FR-BRISTOL-MYERS SQUIBB COMPANY-13951702

PATIENT
  Age: 58 Year
  Sex: Male

DRUGS (8)
  1. SINEMET [Suspect]
  2. SINEMET CR [Suspect]
  3. PARLODEL [Suspect]
  4. ARTANE [Suspect]
     Dosage: 0.4% 30 DROPS PER DAY
  5. OTRASEL [Suspect]
  6. OMEPRAZOLE [Suspect]
     Dates: start: 20070508, end: 20070606
  7. NABUCOX [Concomitant]
  8. DI-ANTALVIC [Concomitant]

REACTIONS (4)
  - BACK PAIN [None]
  - HYPONATRAEMIA [None]
  - INAPPROPRIATE ANTIDIURETIC HORMONE SECRETION [None]
  - WEIGHT DECREASED [None]
